FAERS Safety Report 15657446 (Version 1)
Quarter: 2018Q4

REPORT INFORMATION
  Report Type: Spontaneous
  Country: US (occurrence: US)
  Receive Date: 20181126
  Receipt Date: 20181126
  Transmission Date: 20190205
  Serious: No
  Sender: FDA-Public Use
  Company Number: None

PATIENT
  Age: 51 Year
  Sex: Female
  Weight: 96.3 kg

DRUGS (13)
  1. MULTIVATIMIN PLUS D [Concomitant]
  2. DESIPRAMINE [Concomitant]
     Active Substance: DESIPRAMINE
  3. SYNTHROID [Concomitant]
     Active Substance: LEVOTHYROXINE SODIUM
  4. CYTOMEL [Concomitant]
     Active Substance: LIOTHYRONINE SODIUM
  5. FENOFIBRATE. [Concomitant]
     Active Substance: FENOFIBRATE
  6. DEXILANT [Concomitant]
     Active Substance: DEXLANSOPRAZOLE
  7. MAGNESIUM [Concomitant]
     Active Substance: MAGNESIUM
  8. VITAMIN D [Concomitant]
     Active Substance: CHOLECALCIFEROL
  9. TRAZODONE [Concomitant]
     Active Substance: TRAZODONE HYDROCHLORIDE
  10. AIMOVIG [Suspect]
     Active Substance: ERENUMAB-AOOE
     Indication: MIGRAINE
     Dosage: ?          QUANTITY:2 INJECTION(S);OTHER FREQUENCY:MONTHLY;?
     Route: 058
     Dates: start: 20180715, end: 20181120
  11. METFORMIN ER [Concomitant]
     Active Substance: METFORMIN HYDROCHLORIDE
  12. TROKENDI [Concomitant]
     Active Substance: TOPIRAMATE
  13. VERAPAMIL [Concomitant]
     Active Substance: VERAPAMIL HYDROCHLORIDE

REACTIONS (5)
  - Diarrhoea [None]
  - Renal disorder [None]
  - Asthenia [None]
  - Multi-organ disorder [None]
  - Blood test abnormal [None]

NARRATIVE: CASE EVENT DATE: 20181124
